FAERS Safety Report 10552992 (Version 1)
Quarter: 2014Q4

REPORT INFORMATION
  Report Type: Spontaneous
  Country: US (occurrence: US)
  Receive Date: 20141029
  Receipt Date: 20141029
  Transmission Date: 20150529
  Serious: No
  Sender: FDA-Public Use
  Company Number: US-PFIZER INC-2014295242

PATIENT
  Age: 48 Year
  Sex: Female
  Weight: 54.42 kg

DRUGS (2)
  1. THYROXINE [Suspect]
     Active Substance: LEVOTHYROXINE
     Dosage: UNK
  2. LEVOXYL [Suspect]
     Active Substance: LEVOTHYROXINE SODIUM
     Indication: HYPOTHYROIDISM
     Dosage: 100 MCG 6 DAYS A WEEK AND 112 MCG ONE DAY A WEEK

REACTIONS (6)
  - Fatigue [Unknown]
  - Product quality issue [Unknown]
  - Drug ineffective [Unknown]
  - Nausea [Unknown]
  - Dizziness [Unknown]
  - Tremor [Unknown]
